FAERS Safety Report 7731190-0 (Version None)
Quarter: 2011Q3

REPORT INFORMATION
  Report Type: 
  Country: None (occurrence: None)
  Receive Date: 20110906
  Receipt Date: 20110902
  Transmission Date: 20111222
  Serious: Yes (Death, Other)
  Sender: FDA-Public Use
  Company Number: PHHY2011AU61272

PATIENT
  Age: 75 Year
  Sex: Female

DRUGS (5)
  1. CLOZAPINE [Suspect]
     Indication: SCHIZOPHRENIA
     Dosage: 350 MG,
     Dates: start: 19990505
  2. CLOZAPINE [Suspect]
     Dosage: 300 MG
     Dates: end: 20000608
  3. HALOPERIDOL [Concomitant]
     Dosage: 5 MG,
     Route: 048
  4. VENLAFAXINE HYDROCHLORIDE [Concomitant]
  5. CLOZAPINE [Suspect]
     Dosage: 450 MG,

REACTIONS (2)
  - LYMPHOMA [None]
  - NEUTROPENIA [None]
